FAERS Safety Report 7182682 (Version 3)
Quarter: 2021Q1

REPORT INFORMATION
  Report Type: Spontaneous
  Country: CN (occurrence: CN)
  Receive Date: 20091120
  Receipt Date: 20210224
  Transmission Date: 20210420
  Serious: Yes (Death, Life-Threatening, Hospitalization, Other)
  Sender: FDA-Public Use
  Company Number: CN-PFIZER INC-2009183500

PATIENT
  Age: 52 Year
  Sex: Male
  Weight: 82 kg

DRUGS (9)
  1. CELECOXIB. [Suspect]
     Active Substance: CELECOXIB
     Indication: MUSCULOSKELETAL PAIN
  2. PREDNISOLONE. [Concomitant]
     Active Substance: PREDNISOLONE
     Indication: RASH MACULO-PAPULAR
  3. ULTRA?LEVURE [Concomitant]
     Active Substance: SACCHAROMYCES CEREVISIAE
     Dosage: UNK
     Route: 048
     Dates: start: 20010330, end: 20010409
  4. KETUM [Concomitant]
     Active Substance: KETOPROFEN
  5. CETIRIZINE HYDROCHLORIDE. [Concomitant]
     Active Substance: CETIRIZINE HYDROCHLORIDE
     Indication: RASH MACULO-PAPULAR
  6. CELECOXIB. [Suspect]
     Active Substance: CELECOXIB
     Indication: CERVICAL RADICULOPATHY
     Dosage: 200 MG, 1X/DAY
     Route: 048
     Dates: start: 20010330, end: 20010409
  7. CETIRIZINE HYDROCHLORIDE. [Concomitant]
     Active Substance: CETIRIZINE HYDROCHLORIDE
     Indication: URTICARIA
     Dosage: 10 MG DAILY
  8. PREDNISOLONE. [Concomitant]
     Active Substance: PREDNISOLONE
     Indication: URTICARIA
     Dosage: 40 MG DAILY
  9. DOLIPRANE [Concomitant]
     Active Substance: ACETAMINOPHEN
     Dosage: UNK
     Route: 048
     Dates: start: 20010330, end: 20010409

REACTIONS (25)
  - Vasculitis necrotising [Fatal]
  - Rhabdomyolysis [Not Recovered/Not Resolved]
  - Hypersensitivity vasculitis [Unknown]
  - Shock [Fatal]
  - Rash maculo-papular [Unknown]
  - Circulatory collapse [Unknown]
  - Renal failure [Unknown]
  - Hepatic failure [Unknown]
  - Necrotising gastritis [Unknown]
  - Hypersensitivity [Unknown]
  - Toxic epidermal necrolysis [Fatal]
  - Pancreatitis necrotising [Unknown]
  - Haemolysis [Not Recovered/Not Resolved]
  - Hyperlactacidaemia [Unknown]
  - Diarrhoea [Unknown]
  - Metabolic acidosis [Unknown]
  - Multiple organ dysfunction syndrome [Fatal]
  - Hyperthermia [Unknown]
  - Thrombosis [Unknown]
  - Disseminated intravascular coagulation [Unknown]
  - Enterocolitis [Unknown]
  - Tracheal ulcer [Unknown]
  - Pyrexia [Not Recovered/Not Resolved]
  - Urticaria [Unknown]
  - Angioedema [Unknown]

NARRATIVE: CASE EVENT DATE: 20010409
